FAERS Safety Report 7064641-8 (Version None)
Quarter: 2010Q4

REPORT INFORMATION
  Report Type: 
  Country: None (occurrence: None)
  Receive Date: 20101022
  Receipt Date: 20101022
  Transmission Date: 20110411
  Serious: Yes (Disabling, Other)
  Sender: FDA-Public Use
  Company Number: None

PATIENT
  Age: 5 Year
  Sex: Male
  Weight: 20.4119 kg

DRUGS (2)
  1. PULMICORT RESPULES [Suspect]
     Indication: ASTHMA
     Dosage: 1 VAIL TWICE DAILY INHAL
     Route: 055
     Dates: start: 20101001, end: 20101019
  2. ALBUTEROL SULATE [Suspect]
     Dosage: 1 VAIL TWICE DAILY INHAL
     Route: 055
     Dates: start: 20101001, end: 20101019

REACTIONS (6)
  - ABNORMAL BEHAVIOUR [None]
  - AGGRESSION [None]
  - ASOCIAL BEHAVIOUR [None]
  - EDUCATIONAL PROBLEM [None]
  - OPPOSITIONAL DEFIANT DISORDER [None]
  - PSYCHOMOTOR HYPERACTIVITY [None]
